FAERS Safety Report 5701939-7 (Version None)
Quarter: 2008Q2

REPORT INFORMATION
  Report Type: 
  Country: None (occurrence: None)
  Receive Date: 20080411
  Receipt Date: 20080408
  Transmission Date: 20081010
  Serious: Yes (Hospitalization)
  Sender: FDA-Public Use
  Company Number: KR-AVENTIS-200813111GDDC

PATIENT
  Age: 67 Year
  Sex: Female
  Weight: 82 kg

DRUGS (2)
  1. LANTUS [Suspect]
     Indication: DIABETES MELLITUS
     Route: 058
     Dates: start: 20080115
  2. LANTUS [Suspect]
     Route: 058

REACTIONS (2)
  - FACE OEDEMA [None]
  - GENERAL PHYSICAL HEALTH DETERIORATION [None]
